FAERS Safety Report 7998596 (Version 7)
Quarter: 2013Q1

REPORT INFORMATION
  Report Type: Spontaneous
  Country: US (occurrence: US)
  Receive Date: 20110620
  Receipt Date: 20130214
  Transmission Date: 20140127
  Serious: Yes (Hospitalization, Other)
  Sender: FDA-Public Use
  Company Number: US-ASTRAZENECA-2011SE35834

PATIENT
  Age: 67 Year
  Sex: Male

DRUGS (4)
  1. NEXIUM [Suspect]
     Route: 048
  2. TOPROL XL [Suspect]
     Route: 048
  3. KETOCONAZOLE [Suspect]
     Route: 065
  4. CHEMOTHERAPY [Suspect]
     Route: 065

REACTIONS (8)
  - Full blood count increased [Unknown]
  - Metastatic neoplasm [Unknown]
  - Renal failure [Unknown]
  - Prostate cancer [Unknown]
  - Neoplasm malignant [Unknown]
  - Prostatic specific antigen increased [Not Recovered/Not Resolved]
  - Ageusia [Unknown]
  - Alopecia [Unknown]
